FAERS Safety Report 9089880 (Version 1)
Quarter: 2013Q1

REPORT INFORMATION
  Report Type: Spontaneous
  Country: CA (occurrence: CA)
  Receive Date: 20130131
  Receipt Date: 20130131
  Transmission Date: 20140127
  Serious: Yes (Hospitalization)
  Sender: FDA-Public Use
  Company Number: CA-MERCK-1301CAN014652

PATIENT
  Sex: Male

DRUGS (1)
  1. INTRON A [Suspect]
     Indication: MYCOSIS FUNGOIDES
     Dosage: 1.5 MILLION IU, TIW
     Route: 058
     Dates: end: 201212

REACTIONS (2)
  - Intestinal perforation [Recovered/Resolved]
  - Peritonitis [Recovered/Resolved]
